FAERS Safety Report 7120802-0 (Version None)
Quarter: 2010Q4

REPORT INFORMATION
  Report Type: 
  Country: None (occurrence: None)
  Receive Date: 20101124
  Receipt Date: 20101116
  Transmission Date: 20110411
  Serious: Yes (Death, Other)
  Sender: FDA-Public Use
  Company Number: US-PFIZER INC-2010152204

PATIENT
  Age: 73 Year
  Sex: Male

DRUGS (1)
  1. RAPAMUNE [Suspect]
     Indication: TRANSPLANT REJECTION
     Dosage: 1 MG, 2X/DAY
     Route: 048
     Dates: start: 20100902, end: 20101002

REACTIONS (1)
  - PANCREATIC CARCINOMA [None]
